FAERS Safety Report 24426225 (Version 1)
Quarter: 2024Q4

REPORT INFORMATION
  Report Type: Spontaneous
  Country: US (occurrence: US)
  Receive Date: 20241011
  Receipt Date: 20241011
  Transmission Date: 20250114
  Serious: Yes (Hospitalization, Other)
  Sender: RANBAXY
  Company Number: US-SUN PHARMACEUTICAL INDUSTRIES LTD-2024R1-472787

PATIENT
  Age: 66 Year
  Sex: Male

DRUGS (1)
  1. PROPAFENONE [Suspect]
     Active Substance: PROPAFENONE
     Indication: Product used for unknown indication
     Dosage: 1800 MG
     Route: 065

REACTIONS (5)
  - Disease recurrence [Unknown]
  - Overdose [Unknown]
  - Dizziness [Recovering/Resolving]
  - Sinus bradycardia [Recovering/Resolving]
  - Atrioventricular block [Recovering/Resolving]
